FAERS Safety Report 7101432-3 (Version None)
Quarter: 2010Q4

REPORT INFORMATION
  Report Type: 
  Country: None (occurrence: None)
  Receive Date: 20101115
  Receipt Date: 20101108
  Transmission Date: 20110411
  Serious: No
  Sender: FDA-Public Use
  Company Number: US-PFIZER INC-2010143674

PATIENT
  Sex: Female
  Weight: 90.703 kg

DRUGS (6)
  1. LYRICA [Suspect]
     Indication: FIBROMYALGIA
     Dosage: UNK
     Route: 048
     Dates: start: 20101001, end: 20100101
  2. XANAX [Suspect]
     Indication: ANXIETY
     Dosage: UNK
     Route: 048
  3. XANAX [Suspect]
     Indication: SLEEP DISORDER
  4. TRAZODONE [Suspect]
     Indication: BACK PAIN
     Dosage: UNK
     Route: 048
  5. TEMAZEPAM [Concomitant]
     Indication: SLEEP DISORDER
     Dosage: UNK
     Route: 048
  6. ADVIL [Concomitant]
     Indication: BACK PAIN
     Dosage: UNK
     Route: 048

REACTIONS (2)
  - MUSCLE SPASMS [None]
  - SOMNOLENCE [None]
